FAERS Safety Report 9642602 (Version 1)
Quarter: 2013Q4

REPORT INFORMATION
  Report Type: Spontaneous
  Country: US (occurrence: US)
  Receive Date: 20131024
  Receipt Date: 20131024
  Transmission Date: 20140711
  Serious: No
  Sender: FDA-Public Use
  Company Number: US-PFIZER INC-2013302621

PATIENT
  Age: 60 Year
  Sex: Female
  Weight: 43.08 kg

DRUGS (3)
  1. CELEBREX [Suspect]
     Indication: MIGRAINE
     Dosage: UNK
  2. CYMBALTA [Concomitant]
     Indication: DEPRESSION
     Dosage: 30MG IN MORNING AND 60MG IN EVENING
  3. PROTONIX [Concomitant]
     Indication: GASTROOESOPHAGEAL REFLUX DISEASE
     Dosage: UNK

REACTIONS (1)
  - Gastrointestinal disorder [Unknown]
